FAERS Safety Report 17198313 (Version 4)
Quarter: 2020Q1

REPORT INFORMATION
  Report Type: Report from Study
  Country: GB (occurrence: GB)
  Receive Date: 20191225
  Receipt Date: 20200206
  Transmission Date: 20200409
  Serious: Yes (Hospitalization)
  Sender: FDA-Public Use
  Company Number: GB-UCBSA-2019055159

PATIENT
  Sex: Female

DRUGS (1)
  1. CERTOLIZUMAB PEGOL AUTOCLICKS [Suspect]
     Active Substance: CERTOLIZUMAB PEGOL
     Indication: PSORIASIS
     Dosage: 200 MILLIGRAM, EV 2 WEEKS(QOW)
     Route: 058
     Dates: start: 20190924

REACTIONS (2)
  - Meningitis [Unknown]
  - Syringe issue [Unknown]

NARRATIVE: CASE EVENT DATE: 2019
